FAERS Safety Report 4764500-7 (Version None)
Quarter: 2005Q3

REPORT INFORMATION
  Report Type: 
  Country: None (occurrence: None)
  Receive Date: 20050906
  Receipt Date: 20050826
  Transmission Date: 20060218
  Serious: Yes (Hospitalization, Other)
  Sender: FDA-Public Use
  Company Number: KII-2005-0018321

PATIENT
  Age: 59 Year
  Sex: Female

DRUGS (10)
  1. OXYCONTIN [Suspect]
     Dosage: ORAL
     Route: 048
  2. OXYCODONE HCL [Suspect]
     Dosage: ORAL
     Route: 048
  3. BARBITURATES () [Suspect]
  4. SSRI [Concomitant]
  5. SERUMLIPIDREDUCING AGENTS [Concomitant]
  6. CALCIUM GLUCONATE [Concomitant]
  7. BETA BLOCKING AGENTS [Concomitant]
  8. FOLIC ACID [Concomitant]
  9. METOPROLOL TARTRATE [Concomitant]
  10. ACETAMINOPHEN [Concomitant]

REACTIONS (13)
  - AGITATION [None]
  - ALANINE AMINOTRANSFERASE INCREASED [None]
  - AMMONIA INCREASED [None]
  - ASPARTATE AMINOTRANSFERASE INCREASED [None]
  - BILIARY DILATATION [None]
  - BODY TEMPERATURE INCREASED [None]
  - COMPLETED SUICIDE [None]
  - DYSARTHRIA [None]
  - HEART RATE INCREASED [None]
  - INTENTIONAL MISUSE [None]
  - LETHARGY [None]
  - MULTIPLE DRUG OVERDOSE [None]
  - RESPIRATORY RATE INCREASED [None]
